FAERS Safety Report 6579267-X (Version None)
Quarter: 2010Q1

REPORT INFORMATION
  Report Type: 
  Country: None (occurrence: None)
  Receive Date: 20100203
  Receipt Date: 20100120
  Transmission Date: 20100710
  Serious: Yes (Hospitalization, Other)
  Sender: FDA-Public Use
  Company Number: 230690J10USA

PATIENT
  Age: 56 Year
  Sex: Female
  Weight: 75 kg

DRUGS (14)
  1. REBIF [Suspect]
     Indication: MULTIPLE SCLEROSIS
     Dosage: 44 MCG, 3 IN 1 WEEKS, SUBCUTANEOUS
     Route: 058
     Dates: start: 20071030, end: 20090301
  2. LEVOTHYROXINE (LEVOTHYROXINE /00068001/) [Concomitant]
  3. GABAPENTIN [Concomitant]
  4. AMITRIPTYLINE HCL [Concomitant]
  5. AMANTADINE HCL [Concomitant]
  6. FLUDROCORTISONE ACETATE [Concomitant]
  7. OXYBUTYNIN (OXYBUTYNIN /00538901/) [Concomitant]
  8. CLONAZEPAM [Concomitant]
  9. METOPROLOL (METOPROLOL /00376901/) [Concomitant]
  10. CITALOPRAM (CITALOPRAM /00582601/) [Concomitant]
  11. MIRAPEX [Concomitant]
  12. CLOTRIMAZOLE [Concomitant]
  13. AMBIEN [Concomitant]
  14. IMITREX [Concomitant]

REACTIONS (3)
  - EXOSTOSIS [None]
  - INCISION SITE INFECTION [None]
  - STAPHYLOCOCCAL INFECTION [None]
